FAERS Safety Report 10354806 (Version 8)
Quarter: 2016Q1

REPORT INFORMATION
  Report Type: Report from Study
  Country: US (occurrence: US)
  Receive Date: 20140731
  Receipt Date: 20160118
  Transmission Date: 20160525
  Serious: Yes (Other)
  Sender: FDA-Public Use
  Company Number: US-SA-2014SA080714

PATIENT
  Age: 63 Year
  Sex: Female
  Weight: 92.07 kg

DRUGS (10)
  1. BACLOFEN. [Concomitant]
     Active Substance: BACLOFEN
     Indication: MUSCLE SPASTICITY
     Dates: start: 201405
  2. GABAPENTIN. [Concomitant]
     Active Substance: GABAPENTIN
     Indication: HYPOAESTHESIA
     Dates: start: 201003
  3. LISINOPRIL. [Concomitant]
     Active Substance: LISINOPRIL
  4. ACYCLOVIR. [Concomitant]
     Active Substance: ACYCLOVIR
  5. ASA [Concomitant]
     Active Substance: ASPIRIN
  6. TENORMIN [Concomitant]
     Active Substance: ATENOLOL
  7. AUBAGIO [Suspect]
     Active Substance: TERIFLUNOMIDE
     Indication: MULTIPLE SCLEROSIS
     Route: 048
     Dates: start: 20140603
  8. AMLODIPINE [Concomitant]
     Active Substance: AMLODIPINE BESYLATE
  9. GABAPENTIN. [Concomitant]
     Active Substance: GABAPENTIN
     Indication: PARAESTHESIA
     Dates: start: 201003
  10. ZANAFLEX [Concomitant]
     Active Substance: TIZANIDINE HYDROCHLORIDE

REACTIONS (11)
  - Eye contusion [Recovered/Resolved]
  - Fatigue [Unknown]
  - Herpes virus infection [Unknown]
  - Arthritis [Unknown]
  - Urinary tract infection [Unknown]
  - Hypoaesthesia [Unknown]
  - Abasia [Unknown]
  - Paraesthesia [Unknown]
  - Nausea [Unknown]
  - Burning sensation [Unknown]
  - Alopecia [Unknown]
